FAERS Safety Report 16732755 (Version 2)
Quarter: 2021Q2

REPORT INFORMATION
  Report Type: Spontaneous
  Country: CA (occurrence: CA)
  Receive Date: 20190823
  Receipt Date: 20210403
  Transmission Date: 20210716
  Serious: Yes (Other)
  Sender: FDA-Public Use
  Company Number: CA-AUROBINDO-AUR-APL-2019-054578

PATIENT
  Age: 36 Year
  Sex: Female

DRUGS (8)
  1. SPIRIVA [Suspect]
     Active Substance: TIOTROPIUM BROMIDE MONOHYDRATE
     Indication: PRODUCT USED FOR UNKNOWN INDICATION
     Dosage: 1 DOSAGE FORM, DAILY
     Route: 065
  2. SYMBICORT [Suspect]
     Active Substance: BUDESONIDE\FORMOTEROL FUMARATE DIHYDRATE
     Indication: PRODUCT USED FOR UNKNOWN INDICATION
     Dosage: 2 DOSAGE FORM, TWO TIMES A DAY
  3. CETIRIZINE [Concomitant]
     Active Substance: CETIRIZINE HYDROCHLORIDE
     Indication: PRODUCT USED FOR UNKNOWN INDICATION
     Dosage: UNK, TWO TIMES A DAY
     Route: 065
  4. SINUS RINSE [Concomitant]
     Active Substance: SODIUM BICARBONATE\SODIUM CHLORIDE
     Indication: PRODUCT USED FOR UNKNOWN INDICATION
     Dosage: UNK
     Route: 065
  5. SINGULAIR [Suspect]
     Active Substance: MONTELUKAST SODIUM
     Indication: PRODUCT USED FOR UNKNOWN INDICATION
     Dosage: 10 MILLIGRAM, DAILY
     Route: 016
  6. MONTELUKAST [Suspect]
     Active Substance: MONTELUKAST SODIUM
     Indication: PRODUCT USED FOR UNKNOWN INDICATION
     Dosage: UNK
     Route: 065
  7. ATROVENT [Suspect]
     Active Substance: IPRATROPIUM BROMIDE
     Indication: PRODUCT USED FOR UNKNOWN INDICATION
     Dosage: UNK
     Route: 065
  8. SALBUTAMOL SULFATE [Suspect]
     Active Substance: ALBUTEROL SULFATE
     Indication: ASTHMA
     Dosage: UNK
     Route: 065

REACTIONS (24)
  - Asthma [Unknown]
  - Cholelithiasis [Unknown]
  - Blood immunoglobulin E increased [Unknown]
  - Pharyngitis streptococcal [Unknown]
  - Urticaria [Unknown]
  - Allergic sinusitis [Unknown]
  - Cough [Unknown]
  - Ear pain [Unknown]
  - Hypertension [Unknown]
  - Obesity [Unknown]
  - Bronchitis [Unknown]
  - Chest discomfort [Unknown]
  - Dyspnoea [Unknown]
  - Eosinophilia [Unknown]
  - Productive cough [Unknown]
  - Wheezing [Unknown]
  - Depression [Unknown]
  - Oropharyngeal pain [Unknown]
  - Angioedema [Unknown]
  - Breathing-related sleep disorder [Unknown]
  - Bronchial hyperreactivity [Unknown]
  - Therapeutic product effect incomplete [Unknown]
  - Infection [Unknown]
  - Type 2 diabetes mellitus [Unknown]
